FAERS Safety Report 8221119-3 (Version None)
Quarter: 2012Q1

REPORT INFORMATION
  Report Type: 
  Country: None (occurrence: None)
  Receive Date: 20120307
  Receipt Date: 20101119
  Transmission Date: 20120608
  Serious: No
  Sender: FDA-Public Use
  Company Number: PHHY2010US79337

PATIENT
  Sex: Male

DRUGS (1)
  1. AFINITOR [Suspect]
     Indication: RENAL CANCER
     Dosage: 10 MG,  QD , ORAL
     Route: 048
     Dates: start: 20101001

REACTIONS (4)
  - DECREASED APPETITE [None]
  - DIZZINESS [None]
  - DYSSTASIA [None]
  - DEHYDRATION [None]
